FAERS Safety Report 16032799 (Version 1)
Quarter: 2019Q1

REPORT INFORMATION
  Report Type: Spontaneous
  Country: US (occurrence: US)
  Receive Date: 20190305
  Receipt Date: 20190305
  Transmission Date: 20190418
  Serious: No
  Sender: FDA-Public Use
  Company Number: US-IMPAX LABORATORIES, LLC-2018-IPXL-02102

PATIENT
  Age: 54 Year
  Sex: Male

DRUGS (7)
  1. RYTARY [Suspect]
     Active Substance: CARBIDOPA\LEVODOPA
     Indication: PARKINSON^S DISEASE
     Dosage: 48.75/195 MG, ONE CAPSULES A DAY
     Route: 048
     Dates: start: 20180529, end: 2018
  2. RYTARY [Suspect]
     Active Substance: CARBIDOPA\LEVODOPA
     Dosage: 48.75/195 MG, 2 CAPSULES 5 TIMES A DAY
     Route: 048
     Dates: start: 20180613
  3. KLONOPIN [Concomitant]
     Active Substance: CLONAZEPAM
     Indication: PARKINSON^S DISEASE
     Dosage: 1 MG, 4 /DAY (A YEAR AGO)
     Route: 065
     Dates: start: 2017
  4. MIRAPEX [Concomitant]
     Active Substance: PRAMIPEXOLE DIHYDROCHLORIDE
     Indication: PARKINSON^S DISEASE
     Dosage: 1 MG, FIVE TIMES A DAY
     Route: 065
  5. LEVOTHYROXINE. [Concomitant]
     Active Substance: LEVOTHYROXINE
     Indication: THYROID DISORDER
     Dosage: 137 ?G, 1 /DAY
     Route: 065
  6. CLONAPINE [Concomitant]
     Active Substance: CLONAZEPAM
     Indication: DYSTONIA
     Dosage: 1 MG, FOUR TIMES A DAY
     Route: 065
  7. RYTARY [Suspect]
     Active Substance: CARBIDOPA\LEVODOPA
     Dosage: 48.75/195 MG, 2 CAPSULES 4 TIMES A DAY
     Route: 048
     Dates: start: 2018, end: 20180611

REACTIONS (5)
  - Insomnia [Not Recovered/Not Resolved]
  - Pain in extremity [Not Recovered/Not Resolved]
  - Tremor [Not Recovered/Not Resolved]
  - Dystonia [Not Recovered/Not Resolved]
  - Drug effect delayed [Unknown]

NARRATIVE: CASE EVENT DATE: 20180611
